FAERS Safety Report 21707881 (Version 1)
Quarter: 2022Q4

REPORT INFORMATION
  Report Type: Spontaneous
  Country: FR (occurrence: FR)
  Receive Date: 20221209
  Receipt Date: 20221209
  Transmission Date: 20230112
  Serious: Yes (Hospitalization)
  Sender: FDA-Public Use
  Company Number: None

PATIENT
  Age: 22 Year
  Sex: Female
  Weight: 64 kg

DRUGS (4)
  1. PAXLOVID [Interacting]
     Active Substance: NIRMATRELVIR\RITONAVIR
     Indication: COVID-19 treatment
     Dosage: 2 DF, 1X/DAY
     Route: 048
     Dates: start: 20221026, end: 20221030
  2. TACROLIMUS [Interacting]
     Active Substance: TACROLIMUS
     Indication: Prophylaxis against transplant rejection
     Dosage: 12 MG, 1X/DAY
     Route: 048
     Dates: end: 20221025
  3. TACROLIMUS [Interacting]
     Active Substance: TACROLIMUS
     Dosage: 6 MG, 1X/DAY
     Route: 048
     Dates: start: 20221026, end: 20221030
  4. TACROLIMUS [Interacting]
     Active Substance: TACROLIMUS
     Dosage: 12 MG, 1X/DAY
     Route: 048
     Dates: start: 20221031, end: 20221102

REACTIONS (2)
  - Overdose [Recovered/Resolved]
  - Drug interaction [Unknown]

NARRATIVE: CASE EVENT DATE: 20221102
